FAERS Safety Report 5701831-8 (Version None)
Quarter: 2008Q2

REPORT INFORMATION
  Report Type: 
  Country: None (occurrence: None)
  Receive Date: 20080411
  Receipt Date: 20080411
  Transmission Date: 20081010
  Serious: Yes (Death)
  Sender: FDA-Public Use
  Company Number: None

PATIENT
  Age: 77 Year
  Sex: Female
  Weight: 58.9676 kg

DRUGS (1)
  1. HEPARIN [Suspect]
     Indication: THROMBOSIS
     Dates: start: 20080222, end: 20080226

REACTIONS (4)
  - HYPOTENSION [None]
  - PHARMACEUTICAL PRODUCT COMPLAINT [None]
  - POST PROCEDURAL HAEMORRHAGE [None]
  - SYNCOPE [None]
